FAERS Safety Report 7327090-0 (Version None)
Quarter: 2011Q1

REPORT INFORMATION
  Report Type: 
  Country: None (occurrence: None)
  Receive Date: 20110302
  Receipt Date: 20101216
  Transmission Date: 20110831
  Serious: Yes (Hospitalization)
  Sender: FDA-Public Use
  Company Number: US-US-EMD SERONO, INC.-235134J09USA

PATIENT
  Sex: Female
  Weight: 53 kg

DRUGS (3)
  1. REBIF [Suspect]
     Indication: RELAPSING-REMITTING MULTIPLE SCLEROSIS
     Route: 058
     Dates: start: 20070701
  2. MOTRIN [Concomitant]
     Indication: HEADACHE
     Route: 065
  3. MOTRIN [Concomitant]
     Indication: INFLUENZA LIKE ILLNESS

REACTIONS (5)
  - HEADACHE [None]
  - VISION BLURRED [None]
  - MULTIPLE SCLEROSIS RELAPSE [None]
  - DYSTONIA [None]
  - MUSCULAR WEAKNESS [None]
